APPROVED DRUG PRODUCT: METOPROLOL TARTRATE
Active Ingredient: METOPROLOL TARTRATE
Strength: 1MG/ML
Dosage Form/Route: INJECTABLE;INJECTION
Application: A078085 | Product #001 | TE Code: AP
Applicant: HOSPIRA INC
Approved: Apr 29, 2008 | RLD: No | RS: Yes | Type: RX